FAERS Safety Report 5085190-2 (Version None)
Quarter: 2006Q3

REPORT INFORMATION
  Report Type: 
  Country: None (occurrence: None)
  Receive Date: 20060816
  Receipt Date: 20060731
  Transmission Date: 20061208
  Serious: Yes (Life-Threatening)
  Sender: FDA-Public Use
  Company Number: 2006JP000079

PATIENT
  Age: 67 Year
  Sex: Female
  Weight: 56 kg

DRUGS (8)
  1. PROGRAF [Suspect]
     Indication: RHEUMATOID ARTHRITIS
     Dosage: 1 MG, UID/QD, ORAL; 3 MG, UID/QD, ORAL
     Route: 048
     Dates: end: 20060109
  2. PROGRAF [Suspect]
     Indication: RHEUMATOID ARTHRITIS
     Dosage: 1 MG, UID/QD, ORAL; 3 MG, UID/QD, ORAL
     Route: 048
     Dates: start: 20051001
  3. DETANTOL (BUNAZOSIN HYDROCHLORIDE) TABLET [Concomitant]
  4. CLINORIL (SULINDAC) TABLET [Concomitant]
  5. SELBEX (TEPRENONE) CAPSULE [Concomitant]
  6. ALFAROL (ALFACALCIDOL) CAPSULE [Concomitant]
  7. KOLANTYL (DICYCLOVERINE HYDROCHLORIDE, METHYCELLULOSE, MAGNESIUM OXIDE [Concomitant]
  8. PREDNISOLONE [Concomitant]

REACTIONS (6)
  - CONDITION AGGRAVATED [None]
  - INTERSTITIAL LUNG DISEASE [None]
  - PLACENTAL INSUFFICIENCY [None]
  - RESPIRATORY DISORDER [None]
  - RESPIRATORY FAILURE [None]
  - UTERINE DISORDER [None]
